FAERS Safety Report 9048531 (Version 1)
Quarter: 2013Q1

REPORT INFORMATION
  Report Type: Spontaneous
  Country: US (occurrence: None)
  Receive Date: 20130130
  Receipt Date: 20130130
  Transmission Date: 20140127
  Serious: Yes (Hospitalization)
  Sender: FDA-Public Use
  Company Number: None

PATIENT
  Age: 81 Year
  Sex: Female
  Weight: 48 kg

DRUGS (23)
  1. PLAVIX [Suspect]
     Indication: CORONARY ARTERY DISEASE
     Dosage: CHRONIC
     Route: 048
  2. ASA [Suspect]
     Indication: CORONARY ARTERY DISEASE
     Dosage: CHRONIC
     Route: 048
  3. NOVOLOG [Concomitant]
  4. LIPITOR [Concomitant]
  5. ALIGN [Concomitant]
  6. CA CARB W/VITD [Concomitant]
  7. CLONIDINE [Concomitant]
  8. ARICEPT [Concomitant]
  9. VIT D [Concomitant]
  10. IRON SULFATE [Concomitant]
  11. FIUTICASONE NS [Concomitant]
  12. NEURONTIN [Concomitant]
  13. LANTUS [Concomitant]
  14. REGLA [Concomitant]
  15. LOPRESSOR [Concomitant]
  16. REMERON [Concomitant]
  17. MVI [Concomitant]
  18. NTG [Concomitant]
  19. OMEGA3 [Concomitant]
  20. OMEPRAZOLE [Concomitant]
  21. VIT B [Concomitant]
  22. TYLENOL [Concomitant]
  23. AZELASTINE NS [Concomitant]

REACTIONS (11)
  - Gastrointestinal haemorrhage [None]
  - Acute myocardial infarction [None]
  - Hypernatraemia [None]
  - Acidosis [None]
  - Renal failure acute [None]
  - Haemorrhagic anaemia [None]
  - Duodenitis [None]
  - Gastritis erosive [None]
  - Troponin increased [None]
  - Ischaemia [None]
  - Hypovolaemia [None]
